FAERS Safety Report 9557988 (Version 1)
Quarter: 2013Q3

REPORT INFORMATION
  Report Type: Spontaneous
  Country: US (occurrence: None)
  Receive Date: 20130724
  Receipt Date: 20130724
  Transmission Date: 20140515
  Serious: Yes (Other)
  Sender: FDA-Public Use
  Company Number: PHEH2012US022546

PATIENT
  Age: 70 Year
  Sex: Male

DRUGS (1)
  1. DIOVAN HCT [Suspect]
     Dosage: 1 DF (160 MG VALS AND 12.5 MG HCT)

REACTIONS (4)
  - Hypertension [None]
  - Nervousness [None]
  - Muscle spasms [None]
  - Insomnia [None]
